FAERS Safety Report 8014509-5 (Version None)
Quarter: 2011Q4

REPORT INFORMATION
  Report Type: 
  Country: None (occurrence: None)
  Receive Date: 20111229
  Receipt Date: 20111221
  Transmission Date: 20120403
  Serious: Yes (Hospitalization)
  Sender: FDA-Public Use
  Company Number: US-BAYER-2011-123696

PATIENT
  Sex: Female

DRUGS (3)
  1. RIVAROXABAN [Interacting]
     Indication: ATRIAL FIBRILLATION
     Dosage: DOSAGE FORM: TABLET
     Route: 065
     Dates: end: 20111219
  2. CLOPIDOGREL [Interacting]
     Indication: ILL-DEFINED DISORDER
  3. ACETYLSALICYLIC ACID SRT [Suspect]
     Indication: ILL-DEFINED DISORDER

REACTIONS (1)
  - HAEMORRHAGE [None]
